FAERS Safety Report 21175118 (Version 1)
Quarter: 2022Q3

REPORT INFORMATION
  Report Type: Spontaneous
  Country: GB (occurrence: GB)
  Receive Date: 20220805
  Receipt Date: 20220805
  Transmission Date: 20221027
  Serious: Yes (Other)
  Sender: FDA-Public Use
  Company Number: GB-MHRA-MED-202207211402522830-JGNHP

PATIENT
  Age: 28 Year
  Sex: Male
  Weight: 108 kg

DRUGS (2)
  1. OLANZAPINE [Suspect]
     Active Substance: OLANZAPINE
     Indication: Schizoaffective disorder
     Dosage: 15MG ONCE A DAY AT 2200HRS; ;
     Route: 065
     Dates: start: 20220510
  2. EPILIM [Concomitant]
     Active Substance: VALPROATE SODIUM
     Indication: Schizoaffective disorder
     Dosage: UNK
     Route: 065

REACTIONS (2)
  - Hyperprolactinaemia [Not Recovered/Not Resolved]
  - Sinus tachycardia [Not Recovered/Not Resolved]

NARRATIVE: CASE EVENT DATE: 20220510
